FAERS Safety Report 8048728-9 (Version None)
Quarter: 2012Q1

REPORT INFORMATION
  Report Type: 
  Country: None (occurrence: None)
  Receive Date: 20120110
  Receipt Date: 20120104
  Transmission Date: 20120608
  Serious: Yes (Other)
  Sender: FDA-Public Use
  Company Number: AUR-APL-2012-00172

PATIENT
  Age: 21 Year
  Sex: Female
  Weight: 134 kg

DRUGS (10)
  1. IMPLANON [Suspect]
     Dosage: (68 MG) SUBCUTANEOUS
     Route: 058
     Dates: start: 20080818
  2. CEPHALEXIN [Concomitant]
  3. CITALOPRAM HYDROBROMIDE [Concomitant]
  4. DIPROBASE (PARAFFIN) [Concomitant]
  5. LEVOTHYROXINE SODIUM [Concomitant]
  6. LEVOTHYROXINE SODIUM [Concomitant]
  7. DIORALYTE (ORAL REHYDRATION SALT) [Concomitant]
  8. AMOXICILLIN [Suspect]
     Indication: PRODUCT USED FOR UNKNOWN INDICATION
     Dosage: 1500 MG (500 MG, 3 IN 1 D), UNKNOWN
     Dates: start: 20090226, end: 20090304
  9. DOXYCYCLINE (DOXYCYLCINE) [Concomitant]
  10. ZOPICLONE (ZOPICLONE) [Concomitant]

REACTIONS (7)
  - DEVICE DISLOCATION [None]
  - CAESAREAN SECTION [None]
  - PREGNANCY WITH IMPLANT CONTRACEPTIVE [None]
  - BLOOD THYROID STIMULATING HORMONE INCREASED [None]
  - MATERNAL DRUGS AFFECTING FOETUS [None]
  - INCORRECT DRUG ADMINISTRATION DURATION [None]
  - ABDOMINAL PAIN UPPER [None]
